FAERS Safety Report 5928995-5 (Version None)
Quarter: 2008Q4

REPORT INFORMATION
  Report Type: 
  Country: None (occurrence: None)
  Receive Date: 20081024
  Receipt Date: 20081020
  Transmission Date: 20090506
  Serious: Yes (Other)
  Sender: FDA-Public Use
  Company Number: US-BAYER-200818940NA

PATIENT
  Age: 24 Year
  Sex: Female
  Weight: 62 kg

DRUGS (13)
  1. MIRENA [Suspect]
     Indication: CONTRACEPTION
     Route: 015
     Dates: start: 20070119, end: 20071029
  2. DEPO-PROVERA [Concomitant]
  3. DEMULEN 1/35-28 [Concomitant]
  4. ORTHO CYCLEN-28 [Concomitant]
  5. ORTHO TRI-CYCLEN [Concomitant]
  6. OXYCODONE HCL [Concomitant]
     Indication: UTERINE SPASM
  7. TORADOL [Concomitant]
     Indication: UTERINE SPASM
     Route: 030
     Dates: start: 20070124
  8. FLAGYL [Concomitant]
     Indication: VAGINITIS BACTERIAL
  9. LORTAB [Concomitant]
     Indication: UTERINE SPASM
  10. AUGMENTIN '125' [Concomitant]
     Dates: start: 20070101
  11. ANAPROX DS [Concomitant]
     Indication: UTERINE SPASM
  12. PONSTEL [Concomitant]
     Indication: DYSMENORRHOEA
     Dosage: UNIT DOSE: 2 DF
  13. CLINDESSE [Concomitant]
     Indication: CERVICITIS
     Dates: start: 20071107, end: 20071107

REACTIONS (16)
  - ABDOMINAL DISCOMFORT [None]
  - AMENORRHOEA [None]
  - CERVICAL DYSPLASIA [None]
  - CERVICITIS [None]
  - CERVIX CARCINOMA [None]
  - DYSMENORRHOEA [None]
  - EMOTIONAL DISORDER [None]
  - GENITAL HAEMORRHAGE [None]
  - LOSS OF CONSCIOUSNESS [None]
  - NAUSEA [None]
  - POST PROCEDURAL DISCOMFORT [None]
  - PROCEDURAL DIZZINESS [None]
  - PROCEDURAL PAIN [None]
  - UTERINE SPASM [None]
  - VAGINAL DISCHARGE [None]
  - VAGINITIS BACTERIAL [None]
